FAERS Safety Report 6191895-2 (Version None)
Quarter: 2009Q2

REPORT INFORMATION
  Report Type: 
  Country: None (occurrence: None)
  Receive Date: 20090515
  Receipt Date: 20090506
  Transmission Date: 20091009
  Serious: Yes (Hospitalization, Other)
  Sender: FDA-Public Use
  Company Number: US-CELGENEUS-163-20785-09010864

PATIENT
  Sex: Male

DRUGS (16)
  1. THALOMID [Suspect]
     Indication: MULTIPLE MYELOMA
     Route: 048
     Dates: start: 20081117, end: 20090101
  2. THALOMID [Suspect]
     Dosage: DAILY FOR 7 DAYS, THEN 2 DAILY FOR 7 DAYS THEN 3 DAILY FOR 7 DAYS THEN 4 DAILY FOR 7 DAYS
     Route: 048
     Dates: start: 20070116
  3. THALOMID [Suspect]
     Route: 048
     Dates: start: 20090119
  4. THALOMID [Suspect]
     Route: 048
     Dates: start: 20070501
  5. THALOMID [Suspect]
     Route: 048
     Dates: start: 20080726, end: 20081101
  6. DECADRON [Suspect]
     Indication: MULTIPLE MYELOMA
     Route: 065
  7. VITAMIN B-12 [Concomitant]
     Indication: DRUG USE FOR UNKNOWN INDICATION
     Route: 065
  8. LORTAB [Concomitant]
     Indication: DRUG USE FOR UNKNOWN INDICATION
     Route: 065
  9. LASIX [Concomitant]
     Indication: DRUG USE FOR UNKNOWN INDICATION
     Route: 065
  10. ISOSORBIDE [Concomitant]
     Indication: DRUG USE FOR UNKNOWN INDICATION
     Route: 065
  11. COUMADIN [Concomitant]
     Indication: DRUG USE FOR UNKNOWN INDICATION
     Route: 065
  12. COLACE [Concomitant]
     Indication: DRUG USE FOR UNKNOWN INDICATION
     Route: 065
  13. ASPIRIN [Concomitant]
     Indication: DRUG USE FOR UNKNOWN INDICATION
     Route: 065
  14. FLU VACCINE [Concomitant]
     Route: 065
     Dates: start: 20081018, end: 20081018
  15. NITROGLYCERIN [Concomitant]
     Indication: DRUG USE FOR UNKNOWN INDICATION
     Route: 060
  16. IBUPROFEN [Concomitant]
     Indication: DRUG USE FOR UNKNOWN INDICATION
     Route: 065

REACTIONS (7)
  - CARDIAC FAILURE [None]
  - CATARACT [None]
  - CORONARY ARTERY DISEASE [None]
  - DRY SKIN [None]
  - FATIGUE [None]
  - OEDEMA PERIPHERAL [None]
  - PAIN IN EXTREMITY [None]
